FAERS Safety Report 13046982 (Version 2)
Quarter: 2017Q1

REPORT INFORMATION
  Report Type: Spontaneous
  Country: FR (occurrence: FR)
  Receive Date: 20161220
  Receipt Date: 20170111
  Transmission Date: 20170428
  Serious: Yes (Hospitalization, Disabling, Other)
  Sender: FDA-Public Use
  Company Number: FR-SA-2016SA227603

PATIENT
  Age: 24 Year
  Sex: Male
  Weight: 66 kg

DRUGS (1)
  1. AUBAGIO [Suspect]
     Active Substance: TERIFLUNOMIDE
     Indication: MULTIPLE SCLEROSIS
     Route: 048
     Dates: start: 20160102, end: 20160914

REACTIONS (7)
  - Gastrointestinal wall thickening [Unknown]
  - Gastrointestinal disorder [Unknown]
  - Lymphocyte count decreased [Recovered/Resolved]
  - Bacterial diarrhoea [Recovered/Resolved]
  - Crohn^s disease [Unknown]
  - Neutrophil count increased [Unknown]
  - Pilonidal cyst [Recovered/Resolved]

NARRATIVE: CASE EVENT DATE: 20160514
